FAERS Safety Report 11660480 (Version 1)
Quarter: 2015Q4

REPORT INFORMATION
  Report Type: Spontaneous
  Country: JP (occurrence: JP)
  Receive Date: 20151026
  Receipt Date: 20151026
  Transmission Date: 20160304
  Serious: Yes (Disabling)
  Sender: FDA-Public Use
  Company Number: JP-AKORN PHARMACEUTICALS-2015AKN00611

PATIENT
  Age: 35 Year
  Sex: Male

DRUGS (8)
  1. ALLEGRA [Concomitant]
     Active Substance: FEXOFENADINE HYDROCHLORIDE
     Dosage: UNK TABLETS, UNK
     Dates: start: 20130712, end: 20130726
  2. ZIOPTAN [Suspect]
     Active Substance: TAFLUPROST
     Indication: OPEN ANGLE GLAUCOMA
     Dosage: 1 GTT, SINGLE, OU
     Route: 047
     Dates: start: 20130316
  3. PRANLUKAST [Concomitant]
     Active Substance: PRANLUKAST
     Dosage: UNK CAPSULES, UNK
     Dates: start: 20130712, end: 20130726
  4. C CYSTEN [Concomitant]
     Active Substance: CARBOCYSTEINE
     Dosage: UNK TABLETS, UNK
     Dates: start: 20130712, end: 20130726
  5. MEDICON [Concomitant]
     Active Substance: DEXTROMETHORPHAN HYDROBROMIDE
     Dosage: UNK TABLETS, UNK
     Dates: start: 20130712, end: 20130719
  6. TIMOLOL MALEATE. [Concomitant]
     Active Substance: TIMOLOL MALEATE
     Dosage: UNK
     Route: 047
     Dates: start: 20141108, end: 20150307
  7. MEIACT [Concomitant]
     Active Substance: CEFDITOREN PIVOXIL
     Dosage: UNK TABLETS, UNK
     Dates: start: 20130712, end: 20130719
  8. DORZOLAMIDE HYDROCHLORIDE (+) TIMOLOL MALEATE [Concomitant]
     Active Substance: DORZOLAMIDE HYDROCHLORIDE\TIMOLOL MALEATE
     Dosage: UNK
     Route: 047
     Dates: start: 20150307

REACTIONS (1)
  - Visual field defect [Unknown]

NARRATIVE: CASE EVENT DATE: 20150307
